FAERS Safety Report 7528060-X (Version None)
Quarter: 2011Q2

REPORT INFORMATION
  Report Type: 
  Country: None (occurrence: None)
  Receive Date: 20110531
  Receipt Date: 20110517
  Transmission Date: 20111010
  Serious: Yes (Death, Hospitalization)
  Sender: FDA-Public Use
  Company Number: 2011AL000041

PATIENT
  Age: 45 Year
  Sex: Female
  Weight: 68 kg

DRUGS (8)
  1. MIRTAZAPINE [Concomitant]
  2. PRALATREXATE (PRALATREXATE) [Suspect]
     Indication: COLORECTAL CANCER METASTATIC
     Dosage: 53 MG, QW, IV
     Route: 042
     Dates: start: 20110406, end: 20110421
  3. LEVOTHYROXINE SODIUM [Concomitant]
  4. POTASSIUM CHLORIDE [Concomitant]
  5. MORPHINE SULFATE [Concomitant]
  6. MORPHINE [Concomitant]
  7. MEGACE [Concomitant]
  8. GABAPENTIN [Concomitant]

REACTIONS (10)
  - HAEMOGLOBIN DECREASED [None]
  - HAEMATOCRIT DECREASED [None]
  - HYPERBILIRUBINAEMIA [None]
  - ACTIVATED PARTIAL THROMBOPLASTIN TIME PROLONGED [None]
  - COAGULOPATHY [None]
  - PERITONITIS [None]
  - INTERNATIONAL NORMALISED RATIO INCREASED [None]
  - MENTAL STATUS CHANGES [None]
  - PLATELET COUNT INCREASED [None]
  - VISCERAL ARTERIAL ISCHAEMIA [None]
